FAERS Safety Report 6143681-7 (Version None)
Quarter: 2009Q2

REPORT INFORMATION
  Report Type: 
  Country: None (occurrence: None)
  Receive Date: 20090403
  Receipt Date: 20090327
  Transmission Date: 20091009
  Serious: Yes (Other)
  Sender: FDA-Public Use
  Company Number: US-BAXTER-2009BH004804

PATIENT
  Age: 69 Year
  Sex: Female

DRUGS (3)
  1. HEPARIN SODIUM INJECTION [Suspect]
     Indication: THROMBOSIS PROPHYLAXIS
     Route: 065
  2. HEPARIN SODIUM INJECTION [Suspect]
     Route: 030
  3. SODIUM CHLORIDE [Concomitant]
     Indication: THROMBOSIS PROPHYLAXIS

REACTIONS (5)
  - BRAIN STEM INFARCTION [None]
  - CEREBELLAR INFARCTION [None]
  - CEREBRAL INFARCTION [None]
  - HEPARIN-INDUCED THROMBOCYTOPENIA [None]
  - THALAMIC INFARCTION [None]
